FAERS Safety Report 12505855 (Version 1)
Quarter: 2016Q2

REPORT INFORMATION
  Report Type: Spontaneous
  Country: US (occurrence: US)
  Receive Date: 20160628
  Receipt Date: 20160628
  Transmission Date: 20160815
  Serious: No
  Sender: FDA-Public Use
  Company Number: US-MYLANLABS-2015M1016399

PATIENT
  Sex: Female
  Weight: 62.59 kg

DRUGS (1)
  1. METHOTREXATE [Suspect]
     Active Substance: METHOTREXATE
     Indication: RHEUMATOID ARTHRITIS
     Dosage: UNK
     Dates: start: 1999, end: 1999

REACTIONS (2)
  - Choking sensation [Recovered/Resolved]
  - Hypersensitivity [Not Recovered/Not Resolved]
